FAERS Safety Report 16034096 (Version 1)
Quarter: 2019Q1

REPORT INFORMATION
  Report Type: Spontaneous
  Country: ES (occurrence: ES)
  Receive Date: 20190305
  Receipt Date: 20190305
  Transmission Date: 20190418
  Serious: Yes (Death, Life-Threatening, Hospitalization)
  Sender: FDA-Public Use
  Company Number: ES-AXELLIA-000901

PATIENT
  Sex: Male
  Weight: .55 kg

DRUGS (7)
  1. AMPHOTERICIN B/AMPHOTERICIN B/LIPOSOME [Concomitant]
     Indication: ASPERGILLUS INFECTION
     Dosage: LIPOSOMAL AMPHOTERICIN B
  2. AMPICILLIN/AMPICILLIN POTASSIUM/AMPICILLIN SODIUM/AMPICILLIN TRIHYDRATE [Concomitant]
     Indication: ANTIBIOTIC THERAPY
  3. CEFOTAXIME [Concomitant]
     Active Substance: CEFOTAXIME SODIUM
  4. VORICONAZOLE. [Suspect]
     Active Substance: VORICONAZOLE
     Indication: ANTIFUNGAL TREATMENT
     Route: 042
  5. VANCOMYCIN [Suspect]
     Active Substance: VANCOMYCIN
     Indication: RASH ERYTHEMATOUS
  6. GENTAMICIN. [Concomitant]
     Active Substance: GENTAMICIN
     Indication: ANTIBIOTIC THERAPY
  7. IBUPROFEN/IBUPROFEN ARGININE/IBUPROFEN LYSINATE/IBUPROFEN MEGLUMINE/IBUPROFEN PICONOL/IBUPROFEN SODI [Concomitant]

REACTIONS (7)
  - Bacterial sepsis [Fatal]
  - Toxicity to various agents [Unknown]
  - Hepatic failure [Recovered/Resolved]
  - Multiple organ dysfunction syndrome [Unknown]
  - Shock [Not Recovered/Not Resolved]
  - Gastrointestinal perforation [Fatal]
  - Renal impairment [Fatal]
